FAERS Safety Report 6748460-5 (Version None)
Quarter: 2010Q2

REPORT INFORMATION
  Report Type: 
  Country: None (occurrence: None)
  Receive Date: 20100528
  Receipt Date: 20091112
  Transmission Date: 20101027
  Serious: Yes (Hospitalization, Other)
  Sender: FDA-Public Use
  Company Number: 288029

PATIENT
  Age: 62 Year
  Sex: Female
  Weight: 52.2 kg

DRUGS (12)
  1. ACTIVELLA [Suspect]
     Indication: HORMONE REPLACEMENT THERAPY
     Dosage: 1MG/.5MG
     Dates: start: 20030101, end: 20030801
  2. CYCRIN [Suspect]
     Indication: HORMONE REPLACEMENT THERAPY
     Dosage: 2.5 ; 2.5 MG
     Dates: start: 19960601, end: 19970201
  3. CYCRIN [Suspect]
     Indication: HORMONE REPLACEMENT THERAPY
     Dosage: 2.5 ; 2.5 MG
     Dates: start: 20050201, end: 20050401
  4. PROVERA [Suspect]
     Indication: HORMONE REPLACEMENT THERAPY
     Dosage: 2.5 MG
     Dates: start: 19950401, end: 19960601
  5. MEDROXYPROGESTERONE [Suspect]
     Indication: HORMONE REPLACEMENT THERAPY
  6. PREMPRO [Suspect]
     Indication: HORMONE REPLACEMENT THERAPY
     Dosage: 0.625MG/2.5MG ; 0.45MG/1.5MG
     Dates: start: 19970201, end: 20030101
  7. PREMPRO [Suspect]
     Indication: HORMONE REPLACEMENT THERAPY
     Dosage: 0.625MG/2.5MG ; 0.45MG/1.5MG
     Dates: start: 20030801, end: 20031001
  8. PREMARIN [Suspect]
     Indication: HORMONE REPLACEMENT THERAPY
     Dosage: 0.625 MG
     Dates: start: 19950201, end: 19970201
  9. ESTRACE [Suspect]
     Indication: HORMONE REPLACEMENT THERAPY
     Dosage: 0.1 MG/GM CREAM
     Dates: start: 20020301
  10. FOSAMAX [Concomitant]
  11. FORTEO [Concomitant]
  12. RECLAST [Concomitant]

REACTIONS (2)
  - ARTHRITIS [None]
  - BREAST CANCER [None]
